FAERS Safety Report 6178549-3 (Version None)
Quarter: 2009Q2

REPORT INFORMATION
  Report Type: 
  Country: None (occurrence: None)
  Receive Date: 20090430
  Receipt Date: 20090415
  Transmission Date: 20091009
  Serious: Yes (Other)
  Sender: FDA-Public Use
  Company Number: 220001M09IRL

PATIENT
  Sex: Female

DRUGS (1)
  1. SAIZEN [Suspect]

REACTIONS (4)
  - APLASTIC ANAEMIA [None]
  - LEUKAEMIA [None]
  - PLATELET COUNT DECREASED [None]
  - WHITE BLOOD CELL COUNT DECREASED [None]
